FAERS Safety Report 16681874 (Version 1)
Quarter: 2019Q3

REPORT INFORMATION
  Report Type: Spontaneous
  Country: US (occurrence: US)
  Receive Date: 20190808
  Receipt Date: 20190808
  Transmission Date: 20191004
  Serious: Yes (Hospitalization, Other)
  Sender: FDA-Public Use
  Company Number: US-009507513-1110USA03837

PATIENT
  Sex: Female
  Weight: 47.63 kg

DRUGS (2)
  1. FOSAMAX [Suspect]
     Active Substance: ALENDRONATE SODIUM
     Indication: OSTEOPOROSIS
     Dosage: 70 MG, QW
     Route: 048
     Dates: start: 20090311, end: 201008
  2. FOSAMAX [Suspect]
     Active Substance: ALENDRONATE SODIUM
     Indication: OSTEOPOROSIS
     Dosage: 70 MG, QW
     Route: 048
     Dates: start: 200306, end: 200910

REACTIONS (74)
  - Calcium deficiency [Unknown]
  - Hypermetropia [Unknown]
  - Small intestinal obstruction [Unknown]
  - Arrhythmia supraventricular [Recovered/Resolved]
  - Back pain [Recovered/Resolved]
  - Pernicious anaemia [Unknown]
  - Musculoskeletal chest pain [Unknown]
  - Urinary tract infection [Unknown]
  - Joint effusion [Unknown]
  - Urinary incontinence [Unknown]
  - Dermal cyst [Unknown]
  - Peripheral swelling [Unknown]
  - Breast disorder [Unknown]
  - Presbyopia [Unknown]
  - Eye disorder [Unknown]
  - Gallbladder disorder [Unknown]
  - Haemorrhoids [Unknown]
  - Small intestinal obstruction [Unknown]
  - Large intestine polyp [Unknown]
  - Headache [Unknown]
  - Blood calcium decreased [Unknown]
  - Atrial flutter [Unknown]
  - Ileus [Unknown]
  - Pain in extremity [Unknown]
  - Amnesia [Unknown]
  - Deep vein thrombosis [Unknown]
  - Device failure [Unknown]
  - Patella fracture [Recovering/Resolving]
  - Dementia [Unknown]
  - Pain in extremity [Recovering/Resolving]
  - Osteoarthritis [Unknown]
  - Large intestinal obstruction [Unknown]
  - Skin cancer [Unknown]
  - Uterine disorder [Unknown]
  - Abdominal adhesions [Unknown]
  - Small intestinal obstruction [Unknown]
  - Bile duct stenosis [Unknown]
  - Arthralgia [Recovering/Resolving]
  - Bursitis [Unknown]
  - Femur fracture [Recovering/Resolving]
  - Diverticulitis [Unknown]
  - Astigmatism [Unknown]
  - Transient ischaemic attack [Unknown]
  - Asthenia [Unknown]
  - Nausea [Recovered/Resolved]
  - Breast cancer [Unknown]
  - Angiopathy [Unknown]
  - Rhegmatogenous retinal detachment [Unknown]
  - Arteriosclerosis coronary artery [Unknown]
  - Ovarian disorder [Unknown]
  - Fall [Unknown]
  - Metastatic neoplasm [Unknown]
  - Gastrointestinal disorder [Unknown]
  - Hypertension [Unknown]
  - Gastrointestinal disorder [Unknown]
  - Peptic ulcer [Unknown]
  - Peripheral vascular disorder [Unknown]
  - Spigelian hernia [Unknown]
  - Upper limb fracture [Unknown]
  - Osteoarthritis [Not Recovered/Not Resolved]
  - Vomiting [Recovered/Resolved]
  - Rib fracture [Unknown]
  - Vitamin D deficiency [Unknown]
  - Appendix disorder [Unknown]
  - Cerebrovascular accident [Unknown]
  - Peripheral venous disease [Unknown]
  - Restless legs syndrome [Unknown]
  - Biliary dilatation [Unknown]
  - Fall [Unknown]
  - Arthritis [Unknown]
  - Metastases to bone [Unknown]
  - Diarrhoea [Recovered/Resolved]
  - Fatigue [Unknown]
  - Humerus fracture [Recovering/Resolving]

NARRATIVE: CASE EVENT DATE: 2003
